FAERS Safety Report 4753103-6 (Version None)
Quarter: 2005Q3

REPORT INFORMATION
  Report Type: 
  Country: None (occurrence: None)
  Receive Date: 20050826
  Receipt Date: 20050310
  Transmission Date: 20060218
  Serious: Yes (Hospitalization)
  Sender: FDA-Public Use
  Company Number: US-MERCK-0503USA01913

PATIENT
  Age: 64 Year
  Sex: Male
  Weight: 75 kg

DRUGS (4)
  1. VIOXX [Suspect]
     Indication: ARTHRITIS
     Route: 048
     Dates: start: 20000330, end: 20020604
  2. PRILOSEC [Concomitant]
     Indication: GASTROOESOPHAGEAL REFLUX DISEASE
     Route: 048
  3. NORVASC [Concomitant]
     Indication: HYPERTENSION
     Route: 065
     Dates: start: 19950101
  4. NORVASC [Concomitant]
     Indication: CARDIAC DISORDER
     Route: 065
     Dates: start: 19950101

REACTIONS (28)
  - ABSCESS [None]
  - ANAEMIA [None]
  - ANGINA UNSTABLE [None]
  - ARRHYTHMIA [None]
  - ATHEROSCLEROSIS [None]
  - BONE INFECTION [None]
  - CARDIAC FAILURE [None]
  - CARDIAC FAILURE CONGESTIVE [None]
  - CELLULITIS [None]
  - CONDITION AGGRAVATED [None]
  - CONTUSION [None]
  - CORONARY ARTERY DISEASE [None]
  - DEPRESSION [None]
  - HEART RATE IRREGULAR [None]
  - HYPERLIPIDAEMIA [None]
  - INCREASED TENDENCY TO BRUISE [None]
  - ISCHAEMIC CARDIOMYOPATHY [None]
  - LEG AMPUTATION [None]
  - MYOCARDIAL INFARCTION [None]
  - POOR PERIPHERAL CIRCULATION [None]
  - PSORIASIS [None]
  - RASH [None]
  - RENAL DISORDER [None]
  - RENAL IMPAIRMENT [None]
  - SINUSITIS [None]
  - SKIN DISORDER [None]
  - SUPRAVENTRICULAR EXTRASYSTOLES [None]
  - WEIGHT DECREASED [None]
